FAERS Safety Report 5633560-3 (Version None)
Quarter: 2008Q1

REPORT INFORMATION
  Report Type: 
  Country: None (occurrence: None)
  Receive Date: 20080221
  Receipt Date: 20080212
  Transmission Date: 20080703
  Serious: Yes (Other)
  Sender: FDA-Public Use
  Company Number: PHHY2008AU01761

PATIENT
  Sex: Female

DRUGS (1)
  1. EXJADE [Suspect]
     Dosage: 20-30 MG/KG/DAY
     Route: 048

REACTIONS (4)
  - PROTEINURIA [None]
  - RENAL TUBULAR DISORDER [None]
  - URINE AMINO ACID LEVEL INCREASED [None]
  - URINE PHOSPHATE INCREASED [None]
